FAERS Safety Report 16804612 (Version 2)
Quarter: 2025Q2

REPORT INFORMATION
  Report Type: Spontaneous
  Country: BE (occurrence: BE)
  Receive Date: 20190913
  Receipt Date: 20250630
  Transmission Date: 20250716
  Serious: Yes (Life-Threatening, Hospitalization, Other)
  Sender: AUROBINDO
  Company Number: BE-AUROBINDO-AUR-APL-2019-060637

PATIENT
  Age: 25 Year
  Sex: Female

DRUGS (1)
  1. ACETAMINOPHEN [Suspect]
     Active Substance: ACETAMINOPHEN
     Indication: Product used for unknown indication
     Route: 065

REACTIONS (4)
  - Hypoventilation [Recovering/Resolving]
  - Loss of consciousness [Recovering/Resolving]
  - Seizure [Recovering/Resolving]
  - Poisoning [Unknown]
